FAERS Safety Report 9258492 (Version 8)
Quarter: 2013Q4

REPORT INFORMATION
  Report Type: Report from Study
  Country: CA (occurrence: CA)
  Receive Date: 20130426
  Receipt Date: 20131111
  Transmission Date: 20140711
  Serious: Yes (Death, Other)
  Sender: FDA-Public Use
  Company Number: CA-ROCHE-1215637

PATIENT
  Age: 41 Year
  Sex: Female
  Weight: 77 kg

DRUGS (15)
  1. AVASTIN [Suspect]
     Indication: GLIOBLASTOMA
     Route: 042
     Dates: start: 20130313
  2. AVASTIN [Suspect]
     Route: 042
     Dates: start: 20130313
  3. AVASTIN [Suspect]
     Route: 042
     Dates: start: 20130430
  4. AVASTIN [Suspect]
     Route: 042
     Dates: start: 20130612, end: 20130612
  5. AVASTIN [Suspect]
     Route: 042
     Dates: start: 20130912, end: 20130927
  6. TYLENOL [Concomitant]
     Indication: PREMEDICATION
     Route: 048
     Dates: start: 20130313
  7. BENADRYL (CANADA) [Concomitant]
     Indication: PREMEDICATION
     Route: 048
     Dates: start: 20130313
  8. DECADRON [Concomitant]
  9. PANTOPRAZOLE [Concomitant]
  10. RISPERIDONE [Concomitant]
  11. HYDROCORTISONE [Concomitant]
     Indication: PREMEDICATION
     Route: 042
     Dates: start: 20130430, end: 20130430
  12. METHYLPREDNISOLONE [Concomitant]
     Indication: PREMEDICATION
     Route: 042
     Dates: start: 20130515
  13. ACETAMINOPHEN [Concomitant]
     Route: 048
     Dates: start: 20130313
  14. DIPHENHYDRAMINE HCL [Concomitant]
     Route: 048
  15. SOLU-MEDROL [Concomitant]
     Route: 042
     Dates: start: 20130912

REACTIONS (10)
  - Disease progression [Fatal]
  - Haemorrhoids [Not Recovered/Not Resolved]
  - Neoplasm [Not Recovered/Not Resolved]
  - Drug ineffective [Unknown]
  - Weight increased [Recovering/Resolving]
  - Platelet count decreased [Not Recovered/Not Resolved]
  - Rectal haemorrhage [Not Recovered/Not Resolved]
  - Anorectal discomfort [Not Recovered/Not Resolved]
  - Proctalgia [Not Recovered/Not Resolved]
  - Nasopharyngitis [Recovering/Resolving]
